FAERS Safety Report 4632380-6 (Version None)
Quarter: 2005Q2

REPORT INFORMATION
  Report Type: 
  Country: None (occurrence: None)
  Receive Date: 20050411
  Receipt Date: 20050329
  Transmission Date: 20051028
  Serious: Yes (Other)
  Sender: FDA-Public Use
  Company Number: FR-GLAXOSMITHKLINE-B0376521A

PATIENT
  Age: 36 Year
  Sex: Female

DRUGS (2)
  1. DEROXAT [Suspect]
     Route: 048
     Dates: start: 20041201
  2. LEXOMIL [Concomitant]
     Route: 048

REACTIONS (2)
  - ALANINE AMINOTRANSFERASE INCREASED [None]
  - NAUSEA [None]
